FAERS Safety Report 6830502-X (Version None)
Quarter: 2010Q3

REPORT INFORMATION
  Report Type: 
  Country: None (occurrence: None)
  Receive Date: 20100712
  Receipt Date: 20100702
  Transmission Date: 20110219
  Serious: No
  Sender: FDA-Public Use
  Company Number: US-BIOGENIDEC-2010BI022403

PATIENT
  Sex: Male

DRUGS (1)
  1. AVONEX [Suspect]
     Indication: MULTIPLE SCLEROSIS
     Route: 030
     Dates: start: 20080521

REACTIONS (15)
  - ABDOMINAL DISTENSION [None]
  - APHASIA [None]
  - ARTHRALGIA [None]
  - DEPRESSION [None]
  - DIARRHOEA [None]
  - DISTURBANCE IN ATTENTION [None]
  - DIZZINESS [None]
  - MUSCULOSKELETAL STIFFNESS [None]
  - PAIN [None]
  - PHOTOSENSITIVITY REACTION [None]
  - RENAL PAIN [None]
  - SENSORY DISTURBANCE [None]
  - SINUSITIS [None]
  - VERTIGO [None]
  - VOMITING [None]
